FAERS Safety Report 6120156-2 (Version None)
Quarter: 2009Q1

REPORT INFORMATION
  Report Type: 
  Country: None (occurrence: None)
  Receive Date: 20090316
  Receipt Date: 20090115
  Transmission Date: 20090719
  Serious: No
  Sender: FDA-Public Use
  Company Number: US-ABBOTT-09P-163-0498297-00

PATIENT
  Age: 70 Year
  Sex: Female

DRUGS (1)
  1. TRILIPIX [Suspect]
     Indication: DRUG USE FOR UNKNOWN INDICATION
     Dates: start: 20090114, end: 20090115

REACTIONS (3)
  - DYSPHAGIA [None]
  - RASH [None]
  - SWOLLEN TONGUE [None]
